FAERS Safety Report 9669750 (Version 1)
Quarter: 2013Q4

REPORT INFORMATION
  Report Type: Spontaneous
  Country: CO (occurrence: CO)
  Receive Date: 20131105
  Receipt Date: 20131105
  Transmission Date: 20140711
  Serious: Yes (Life-Threatening, Other)
  Sender: FDA-Public Use
  Company Number: CO-PFIZER INC-2013313947

PATIENT
  Age: 68 Year
  Sex: Male
  Weight: 67 kg

DRUGS (15)
  1. PIPERACILLIN/TAZOBACTAM [Suspect]
     Dosage: UNK
     Route: 041
     Dates: start: 20131022
  2. CLARITHROMYCIN [Concomitant]
     Dosage: UNK
     Route: 065
     Dates: start: 20131022
  3. CALCIUM CARBONATE [Concomitant]
     Route: 065
  4. ACETAMINOPHEN [Concomitant]
     Route: 065
  5. DALTEPARIN [Concomitant]
     Route: 065
  6. HYDROCORTISONE [Concomitant]
     Route: 065
  7. IPRATROPIUM BROMIDE [Concomitant]
     Route: 065
  8. OMEPRAZOL [Concomitant]
     Route: 065
  9. PREDNISOLON [Concomitant]
     Route: 065
  10. SALBUTAMOL [Concomitant]
     Route: 065
  11. SALMETEROL XINAFOATE/FLUTICASONE PROPIONATE [Concomitant]
     Route: 065
  12. TIOTROPIUM [Concomitant]
     Route: 065
  13. SULBACTAM [Concomitant]
     Route: 065
  14. AMPICILLIN [Concomitant]
     Route: 065
  15. DOXYCYCLINE [Concomitant]
     Route: 065

REACTIONS (3)
  - Chronic obstructive pulmonary disease [Recovered/Resolved]
  - Chest pain [Unknown]
  - Urticaria [Unknown]
